FAERS Safety Report 9549574 (Version 1)
Quarter: 2013Q3

REPORT INFORMATION
  Report Type: Spontaneous
  Country: US (occurrence: None)
  Receive Date: 20130719
  Receipt Date: 20130719
  Transmission Date: 20140515
  Serious: Yes (Hospitalization)
  Sender: FDA-Public Use
  Company Number: 2013BAX003716

PATIENT
  Age: 54 Year
  Sex: Male
  Weight: 77.1 kg

DRUGS (12)
  1. CYCLOPHOSPHAMIDE [Suspect]
     Indication: PLASMA CELL MYELOMA
     Route: 042
     Dates: start: 20121220
  2. VELCADE [Suspect]
     Indication: PLASMA CELL MYELOMA
     Dates: start: 20120921
  3. FLUCONAZOLE (FLUCONAZOLE) [Concomitant]
  4. ONDANSETRON (ONDANSETRON) [Concomitant]
  5. PROCHLORPERAZINE (PROCHLORPERAZINE) [Concomitant]
  6. LORAZEPAM (LORAZEPAM) [Concomitant]
  7. ASA (ACETYLSALICYLIC ACID) [Concomitant]
  8. CALCIUM + VITAMIN D (COLECALCIFEROL, CALCIUM) [Concomitant]
  9. DOCUSATE (DOCUSATE) [Concomitant]
  10. SENNA (SENNA ALEXANDRINA) [Concomitant]
  11. OXYBUTYNIN (OXYBUTYNIN) [Concomitant]
  12. ACYCLOVIR (ACICLOVIR) (ACICLOVIR) [Concomitant]

REACTIONS (1)
  - Cystitis [None]
